FAERS Safety Report 6218033-1 (Version None)
Quarter: 2009Q2

REPORT INFORMATION
  Report Type: 
  Country: None (occurrence: None)
  Receive Date: 20090604
  Receipt Date: 20090604
  Transmission Date: 20091009
  Serious: Yes (Other)
  Sender: FDA-Public Use
  Company Number: None

PATIENT
  Age: 54 Year
  Sex: Male
  Weight: 68.0396 kg

DRUGS (1)
  1. KETOCONAZOLE [Suspect]
     Indication: DERMATITIS
     Dosage: SHAMPOO DAILY TOP
     Route: 061
     Dates: start: 20090401, end: 20090531

REACTIONS (7)
  - FEELING HOT [None]
  - HEADACHE [None]
  - HYPERAESTHESIA [None]
  - LOCAL SWELLING [None]
  - PAIN [None]
  - RASH ERYTHEMATOUS [None]
  - SWELLING FACE [None]
